FAERS Safety Report 14264947 (Version 2)
Quarter: 2017Q4

REPORT INFORMATION
  Report Type: Report from Study
  Country: NL (occurrence: NL)
  Receive Date: 20171208
  Receipt Date: 20171219
  Transmission Date: 20180321
  Serious: Yes (Death)
  Sender: FDA-Public Use
  Company Number: PHHY2017NL181777

PATIENT
  Age: 81 Year
  Sex: Female
  Weight: 80 kg

DRUGS (7)
  1. FENTANYL. [Concomitant]
     Active Substance: FENTANYL
     Indication: PRODUCT USED FOR UNKNOWN INDICATION
     Dosage: 1 DF, TID
     Route: 065
     Dates: start: 20170920
  2. PARACETAMOL [Concomitant]
     Active Substance: ACETAMINOPHEN
     Indication: PRODUCT USED FOR UNKNOWN INDICATION
     Dosage: 1 G, QD
     Route: 054
  3. FENTANYL. [Concomitant]
     Active Substance: FENTANYL
     Dosage: AS NEEDED MAX 6DD
     Route: 065
     Dates: start: 20170920
  4. ZOMETA [Suspect]
     Active Substance: ZOLEDRONIC ACID
     Indication: HEPATIC CANCER
     Dosage: 4 MG, ONCE PER 3 MONTHS
     Route: 042
     Dates: start: 20170322, end: 20170907
  5. ZOMETA [Suspect]
     Active Substance: ZOLEDRONIC ACID
     Indication: PANCREATIC CARCINOMA
  6. FENTANYL. [Concomitant]
     Active Substance: FENTANYL
     Dosage: UNK
  7. ZOMETA [Suspect]
     Active Substance: ZOLEDRONIC ACID
     Indication: METASTASES TO BONE
     Dosage: 4 MG, (4MG/100ML ONCE EVERY 12 WEEKS)
     Route: 042
     Dates: start: 20151113

REACTIONS (5)
  - Pancreatic carcinoma metastatic [Fatal]
  - Malignant neoplasm progression [Fatal]
  - Metastases to bone [Fatal]
  - Hepatic cancer metastatic [Fatal]
  - Inappropriate schedule of drug administration [Unknown]

NARRATIVE: CASE EVENT DATE: 20170906
